FAERS Safety Report 19680136 (Version 1)
Quarter: 2021Q3

REPORT INFORMATION
  Report Type: Spontaneous
  Country: CN (occurrence: CN)
  Receive Date: 20210810
  Receipt Date: 20210810
  Transmission Date: 20211014
  Serious: Yes (Other)
  Sender: FDA-Public Use
  Company Number: CN-PFIZER INC-202100964451

PATIENT

DRUGS (3)
  1. TIGECYCLINE. [Suspect]
     Active Substance: TIGECYCLINE
     Indication: ASPERGILLUS INFECTION
     Dosage: UNK
  2. CEFOSELIS [Suspect]
     Active Substance: CEFOSELIS
     Indication: ASPERGILLUS INFECTION
     Dosage: UNK
  3. VFEND [Suspect]
     Active Substance: VORICONAZOLE
     Indication: ASPERGILLUS INFECTION
     Dosage: UNK

REACTIONS (4)
  - Disorganised speech [Recovered/Resolved]
  - Dyscalculia [Recovered/Resolved]
  - Mental disorder [Recovered/Resolved]
  - Off label use [Unknown]
